FAERS Safety Report 6997397-5 (Version None)
Quarter: 2010Q3

REPORT INFORMATION
  Report Type: 
  Country: None (occurrence: None)
  Receive Date: 20100918
  Receipt Date: 20091008
  Transmission Date: 20110219
  Serious: No
  Sender: FDA-Public Use
  Company Number: US-WYE-H11534109

PATIENT
  Sex: Female

DRUGS (2)
  1. PRISTIQ [Suspect]
     Indication: MAJOR DEPRESSION
     Route: 048
     Dates: start: 20091001, end: 20091003
  2. LUNESTA [Concomitant]

REACTIONS (2)
  - CONTUSION [None]
  - CYANOSIS [None]
